FAERS Safety Report 18699081 (Version 3)
Quarter: 2021Q1

REPORT INFORMATION
  Report Type: Spontaneous
  Country: US (occurrence: US)
  Receive Date: 20210105
  Receipt Date: 20210226
  Transmission Date: 20210419
  Serious: Yes (Hospitalization, Other)
  Sender: FDA-Public Use
  Company Number: US-AMGEN-USASP2020213256

PATIENT
  Age: 65 Year
  Sex: Female
  Weight: 87.5 kg

DRUGS (42)
  1. COZAAR [Concomitant]
     Active Substance: LOSARTAN POTASSIUM
     Indication: HYPERTENSION
     Dosage: 100 MILLIGRAM, QD
     Route: 048
  2. TYLENOL EXTRA STRENGTH [Concomitant]
     Active Substance: ACETAMINOPHEN
     Indication: PAIN
     Dosage: 1000 MILLIGRAM, Q6H
     Route: 048
  3. ZOFRAN [Concomitant]
     Active Substance: ONDANSETRON HYDROCHLORIDE
     Indication: VOMITING
  4. APRESOLINE HYDROCHLORIDE [Concomitant]
     Active Substance: HYDRALAZINE HYDROCHLORIDE
     Dosage: 25 MILLIGRAM, QD
     Route: 048
  5. HYTONE [Concomitant]
     Active Substance: HYDROCORTISONE
     Dosage: ONE APPLICATION, BID
     Route: 061
  6. REPATHA [Suspect]
     Active Substance: EVOLOCUMAB
     Indication: HYPERLIPIDAEMIA
  7. CYMBALTA [Concomitant]
     Active Substance: DULOXETINE HYDROCHLORIDE
     Dosage: 60 MILLIGRAM, BID
     Route: 048
  8. RANEXA [Concomitant]
     Active Substance: RANOLAZINE
     Dosage: 500 MILLIGRAM, BID
     Route: 048
  9. ZETIA [Concomitant]
     Active Substance: EZETIMIBE
     Dosage: 10 MILLIGRAM, QD
     Route: 048
  10. DULAGLUTIDE. [Concomitant]
     Active Substance: DULAGLUTIDE
     Dosage: 1.5 MILLIGRAM, QWK
     Route: 058
  11. HUMULIN N [Concomitant]
     Active Substance: INSULIN HUMAN
     Dosage: 50 UNIT, BID
     Route: 058
  12. LIDODERM [Concomitant]
     Active Substance: LIDOCAINE
     Dosage: 5 PERCENT, QD
     Route: 061
  13. PROTONIX [Concomitant]
     Active Substance: PANTOPRAZOLE SODIUM
     Dosage: 40 MILLIGRAM, QD
     Route: 048
  14. COLACE [Concomitant]
     Active Substance: DOCUSATE SODIUM
     Dosage: 100 MILLIGRAM, TID
     Route: 048
  15. REPATHA [Suspect]
     Active Substance: EVOLOCUMAB
     Indication: TYPE IIA HYPERLIPIDAEMIA
     Dosage: 140 MILLIGRAM PER MILLILITRE, Q2WK
     Route: 058
  16. ASPIRIN EC [Concomitant]
     Active Substance: ASPIRIN
     Dosage: 81 MILLIGRAM, QD
     Route: 048
  17. NORCO [Concomitant]
     Active Substance: ACETAMINOPHEN\HYDROCODONE BITARTRATE
     Indication: PAIN
     Dosage: UNK UNK, Q6H
     Route: 048
  18. PEPCID [Concomitant]
     Active Substance: FAMOTIDINE
     Dosage: 20 MILLIGRAM, BID
     Route: 048
  19. KLOR?CON [Concomitant]
     Active Substance: POTASSIUM CHLORIDE
     Dosage: 20 MILLIEQUIVALENT, QD
     Route: 048
  20. NEURONTIN [Concomitant]
     Active Substance: GABAPENTIN
     Dosage: 600 MILLIGRAM, QD
     Route: 048
  21. NITROSTAT [Concomitant]
     Active Substance: NITROGLYCERIN
     Indication: CHEST PAIN
     Dosage: 0.4 MILLIGRAM, AS NECESSARY
     Route: 060
  22. NOVOLIN 30R [INSULIN] [Concomitant]
     Active Substance: INSULIN HUMAN
     Dosage: 50 UNIT, BID
     Route: 058
  23. VOLTAREN [Concomitant]
     Active Substance: DICLOFENAC SODIUM
     Dosage: ONE APPLICATION, TID
     Route: 061
  24. COREG [Concomitant]
     Active Substance: CARVEDILOL
     Dosage: 3.125 MILLIGRAM, BID
     Route: 048
  25. BRILINTA [Concomitant]
     Active Substance: TICAGRELOR
     Dosage: 90 MILLIGRAM, BID
     Route: 048
  26. NOVOLIN R [Concomitant]
     Active Substance: INSULIN HUMAN
     Dosage: 30 UNIT, TID
     Route: 058
  27. GLUCOSE [Concomitant]
     Active Substance: DEXTROSE
     Dosage: 6?32 G 4?8 TABLET, AS NECESSARY
     Route: 048
  28. LASIX [Concomitant]
     Active Substance: FUROSEMIDE
     Indication: HYPERTENSION
     Dosage: 20 MILLIGRAM, QD
     Route: 048
  29. FLEXERIL [Concomitant]
     Active Substance: CYCLOBENZAPRINE HYDROCHLORIDE
     Indication: MUSCLE SPASMS
     Dosage: UNK UNK, Q8H
     Route: 048
  30. ZOFRAN [Concomitant]
     Active Substance: ONDANSETRON HYDROCHLORIDE
     Indication: NAUSEA
     Dosage: 4 MILLIGRAM, Q8H
     Route: 048
  31. ISOSORBIDE DINITRATE. [Concomitant]
     Active Substance: ISOSORBIDE DINITRATE
     Dosage: 60 MILLIGRAM, QD
     Route: 048
  32. RESTASIS [Concomitant]
     Active Substance: CYCLOSPORINE
     Dosage: 1 DROP
     Route: 047
  33. BENADRYL [Concomitant]
     Active Substance: DIPHENHYDRAMINE HYDROCHLORIDE
     Indication: PRURITUS
     Dosage: 25 MILLIGRAM, Q4H
     Route: 048
  34. MICROZIDE [HYDROCHLOROTHIAZIDE] [Concomitant]
     Indication: HYPERTENSION
     Dosage: 12.5 MILLIGRAM, QD
     Route: 048
  35. LMX 4 [Concomitant]
     Dosage: 5 MILLILITER, QD
     Route: 061
  36. VITAMIN D3 [Concomitant]
     Active Substance: CHOLECALCIFEROL
     Dosage: 125 MICROGRAM
     Route: 048
  37. IMDUR [Concomitant]
     Active Substance: ISOSORBIDE MONONITRATE
     Dosage: 60 MILLIGRAM, QD
     Route: 048
  38. GLUTOSE [Concomitant]
     Active Substance: DEXTROSE
     Dosage: 40 PERCENT, AS NECESSARY
     Route: 048
  39. GLUCAGEN [GLUCAGON] [Concomitant]
     Dosage: 1 MILLIGRAM, AS NECESSARY
     Route: 058
  40. VALIUM [Concomitant]
     Active Substance: DIAZEPAM
     Dosage: 5 MILLIGRAM, ONCE
     Route: 048
  41. VITAMIN B12 [Concomitant]
     Active Substance: CYANOCOBALAMIN
     Dosage: 1000 MICROGRAM, QD
     Route: 048
  42. LANTUS [Concomitant]
     Active Substance: INSULIN GLARGINE
     Dosage: 10 UNIT, Q12H
     Route: 058

REACTIONS (19)
  - Mitral valve incompetence [Unknown]
  - Abdominal discomfort [Unknown]
  - Ventricular hypokinesia [Unknown]
  - Diabetes mellitus inadequate control [Unknown]
  - Haemangioma of spleen [Unknown]
  - Cellulitis [Recovered/Resolved]
  - Gangrene [Recovered/Resolved]
  - Ischaemic stroke [Recovering/Resolving]
  - Cerebral atrophy [Unknown]
  - Osteomyelitis [Recovered/Resolved]
  - Peripheral arterial occlusive disease [Recovered/Resolved]
  - Splenic granuloma [Unknown]
  - Tricuspid valve incompetence [Unknown]
  - Cerebral venous thrombosis [Unknown]
  - Cholelithiasis [Unknown]
  - Sepsis [Unknown]
  - Arteriosclerosis coronary artery [Unknown]
  - Peripheral artery occlusion [Unknown]
  - Diarrhoea [Unknown]

NARRATIVE: CASE EVENT DATE: 20201007
